FAERS Safety Report 21023696 (Version 1)
Quarter: 2022Q2

REPORT INFORMATION
  Report Type: Spontaneous
  Country: FR (occurrence: FR)
  Receive Date: 20220629
  Receipt Date: 20220629
  Transmission Date: 20220721
  Serious: Yes (Hospitalization)
  Sender: FDA-Public Use
  Company Number: None

PATIENT
  Age: 74 Year
  Sex: Female
  Weight: 58 kg

DRUGS (3)
  1. OXYCODONE [Suspect]
     Active Substance: OXYCODONE
     Indication: Back pain
     Dosage: 2 DOSAGE FORM, QD (2 TIMES PER DAY)
     Route: 048
     Dates: start: 20220512, end: 20220520
  2. ACETAMINOPHEN [Suspect]
     Active Substance: ACETAMINOPHEN
     Indication: Back pain
     Dosage: 4 GRAM, QD (2 CAPSULES OF 500 MG 4 TIMES A DAY)
     Route: 048
     Dates: start: 20220512, end: 20220520
  3. OXYCODONE HYDROCHLORIDE [Suspect]
     Active Substance: OXYCODONE HYDROCHLORIDE
     Indication: Back pain
     Dosage: 4 DOSAGE FORM, QD (4 TABLETS PER DAY)
     Route: 048
     Dates: start: 20220512, end: 20220520

REACTIONS (1)
  - Hepatic cytolysis [Recovered/Resolved]

NARRATIVE: CASE EVENT DATE: 20220517
